FAERS Safety Report 7534733-5 (Version None)
Quarter: 2011Q2

REPORT INFORMATION
  Report Type: 
  Country: None (occurrence: None)
  Receive Date: 20110609
  Receipt Date: 20110520
  Transmission Date: 20111010
  Serious: Yes (Other)
  Sender: FDA-Public Use
  Company Number: PHHY2011US22914

PATIENT
  Sex: Female

DRUGS (1)
  1. RECLAST [Suspect]
     Route: 042
     Dates: start: 20101101

REACTIONS (10)
  - CHEST PAIN [None]
  - FIBROMYALGIA [None]
  - BACK PAIN [None]
  - ARTHRALGIA [None]
  - PAIN IN EXTREMITY [None]
  - NECK PAIN [None]
  - GAIT DISTURBANCE [None]
  - DEPRESSION [None]
  - MUSCLE SPASMS [None]
  - PAIN [None]
